FAERS Safety Report 4337225-X (Version None)
Quarter: 2004Q2

REPORT INFORMATION
  Report Type: 
  Country: None (occurrence: None)
  Receive Date: 20040412
  Receipt Date: 20040412
  Transmission Date: 20050107
  Serious: No
  Sender: FDA-Public Use
  Company Number: None

PATIENT
  Age: 8 Year
  Sex: Male
  Weight: 39.0093 kg

DRUGS (1)
  1. XYLODERM ASTRA-ZENECA [Suspect]
     Dates: start: 20040408, end: 20040409

REACTIONS (3)
  - BLISTER [None]
  - RASH PUSTULAR [None]
  - SCAR [None]
